FAERS Safety Report 5745713-4 (Version None)
Quarter: 2008Q2

REPORT INFORMATION
  Report Type: 
  Country: None (occurrence: None)
  Receive Date: 20080519
  Receipt Date: 20080308
  Transmission Date: 20081010
  Serious: No
  Sender: FDA-Public Use
  Company Number: TPA2008A00310

PATIENT
  Sex: Male

DRUGS (1)
  1. ROZEREM [Suspect]
     Dosage: 8 MG, PER ORAL
     Route: 048

REACTIONS (3)
  - DRUG INEFFECTIVE [None]
  - MIDDLE INSOMNIA [None]
  - POOR QUALITY SLEEP [None]
